FAERS Safety Report 18744736 (Version 1)
Quarter: 2021Q1

REPORT INFORMATION
  Report Type: Spontaneous
  Country: US (occurrence: US)
  Receive Date: 20210115
  Receipt Date: 20210115
  Transmission Date: 20210419
  Serious: Yes (Hospitalization, Other)
  Sender: FDA-Public Use
  Company Number: US-SCIEGEN-2021SCILIT00015

PATIENT
  Age: 70 Year
  Sex: Female

DRUGS (3)
  1. INSULIN [Interacting]
     Active Substance: INSULIN NOS
     Indication: DIABETIC KETOACIDOSIS
     Route: 041
  2. METFORMIN HYDROCHLORIDETABLETS [Suspect]
     Active Substance: METFORMIN HYDROCHLORIDE
     Indication: TYPE 2 DIABETES MELLITUS
     Route: 065
  3. BICARBONATE [Interacting]
     Active Substance: SODIUM BICARBONATE
     Indication: DIABETIC KETOACIDOSIS
     Route: 041

REACTIONS (6)
  - Toxicity to various agents [Unknown]
  - Encephalopathy [Recovered/Resolved]
  - Lactic acidosis [Recovered/Resolved]
  - Metabolic acidosis [Recovered/Resolved]
  - Accidental overdose [Unknown]
  - Haemodynamic instability [Recovered/Resolved]
